FAERS Safety Report 7805555-2 (Version None)
Quarter: 2011Q4

REPORT INFORMATION
  Report Type: 
  Country: None (occurrence: None)
  Receive Date: 20111010
  Receipt Date: 20111003
  Transmission Date: 20120403
  Serious: Yes (Other)
  Sender: FDA-Public Use
  Company Number: US-MERCK-1108USA02058

PATIENT
  Age: 66 Year
  Sex: Female
  Weight: 70 kg

DRUGS (3)
  1. FOSAMAX [Suspect]
     Indication: OSTEOPOROSIS
     Route: 048
     Dates: start: 20030101, end: 20100101
  2. SUCRALFATE [Concomitant]
     Route: 065
  3. ESOMEPRAZOLE [Concomitant]
     Route: 065

REACTIONS (3)
  - SPINAL FRACTURE [None]
  - FOOT FRACTURE [None]
  - FEMUR FRACTURE [None]
